FAERS Safety Report 15318931 (Version 1)
Quarter: 2018Q3

REPORT INFORMATION
  Report Type: Spontaneous
  Country: US (occurrence: US)
  Receive Date: 20180820
  Receipt Date: 20180820
  Transmission Date: 20181010
  Serious: Yes (Other)
  Sender: FDA-Public Use
  Company Number: None

PATIENT
  Sex: Male

DRUGS (1)
  1. SUBOXONE [Suspect]
     Active Substance: BUPRENORPHINE HYDROCHLORIDE\NALOXONE HYDROCHLORIDE
     Indication: PRODUCT USED FOR UNKNOWN INDICATION
     Dosage: ?          QUANTITY:75 75;?
     Route: 060

REACTIONS (6)
  - Seizure [None]
  - Drug abuse [None]
  - Coma [None]
  - Overdose [None]
  - Cardiac arrest [None]
  - Incoherent [None]

NARRATIVE: CASE EVENT DATE: 20180501
